FAERS Safety Report 19656253 (Version 1)
Quarter: 2021Q3

REPORT INFORMATION
  Report Type: Spontaneous
  Country: ES (occurrence: ES)
  Receive Date: 20210804
  Receipt Date: 20210804
  Transmission Date: 20211014
  Serious: Yes (Hospitalization)
  Sender: FDA-Public Use
  Company Number: ES-TEVA-2021-ES-1938811

PATIENT
  Age: 84 Year
  Sex: Female

DRUGS (1)
  1. AMOXICILINA /ACIDO CLAVULANICO RATIOPHARM 500 MG/125 MG COMPRIMIDOS RE [Suspect]
     Active Substance: AMOXICILLIN\CLAVULANIC ACID
     Dosage: EFG
     Route: 065
     Dates: start: 20210312

REACTIONS (1)
  - Hepatitis cholestatic [Recovered/Resolved]

NARRATIVE: CASE EVENT DATE: 20210409
